FAERS Safety Report 5628833-4 (Version None)
Quarter: 2008Q1

REPORT INFORMATION
  Report Type: 
  Country: None (occurrence: None)
  Receive Date: 20080215
  Receipt Date: 20080205
  Transmission Date: 20080703
  Serious: Yes (Other)
  Sender: FDA-Public Use
  Company Number: US-PFIZER INC-2008012902

PATIENT
  Sex: Female
  Weight: 73.636 kg

DRUGS (3)
  1. CHANTIX [Suspect]
     Indication: SMOKING CESSATION THERAPY
     Dates: start: 20080101, end: 20080205
  2. XANAX [Concomitant]
     Indication: ANXIETY
  3. CONCERTA [Concomitant]

REACTIONS (11)
  - ABNORMAL BEHAVIOUR [None]
  - ABNORMAL DREAMS [None]
  - ANXIETY [None]
  - HEADACHE [None]
  - INSOMNIA [None]
  - IRRITABILITY [None]
  - MEDICATION TAMPERING [None]
  - MOVEMENT DISORDER [None]
  - NAUSEA [None]
  - PERSONALITY DISORDER [None]
  - TREMOR [None]
